FAERS Safety Report 23719521 (Version 1)
Quarter: 2024Q2

REPORT INFORMATION
  Report Type: Spontaneous
  Country: US (occurrence: US)
  Receive Date: 20240408
  Receipt Date: 20240408
  Transmission Date: 20240717
  Serious: No
  Sender: FDA-Public Use
  Company Number: US-BIOVITRUM-2024-US-000379

PATIENT
  Age: 7 Month
  Sex: Male
  Weight: 7.2 kg

DRUGS (2)
  1. SYNAGIS [Suspect]
     Active Substance: PALIVIZUMAB
     Indication: Premature baby
     Dosage: 15MG/KG MONTHLY
     Route: 030
  2. SYNAGIS [Suspect]
     Active Substance: PALIVIZUMAB
     Dosage: FREQUENCY: MONTHLY. SYNAGIS 50MG SDV/INJ PF 0.5ML 1^S AND 100MG SDV/INJ PF 1ML1^S
     Route: 030

REACTIONS (1)
  - COVID-19 [Unknown]
